FAERS Safety Report 5214737-8 (Version None)
Quarter: 2007Q1

REPORT INFORMATION
  Report Type: 
  Country: None (occurrence: None)
  Receive Date: 20061113
  Receipt Date: 20060602
  Transmission Date: 20070707
  Serious: No
  Sender: FDA-Public Use
  Company Number: VER_0013_2006

PATIENT
  Age: 40 Year
  Sex: Female
  Weight: 48.5349 kg

DRUGS (1)
  1. TWINJECT [Suspect]
     Indication: ANAPHYLACTIC REACTION
     Dosage: 1 DF ONCE SC
     Route: 058
     Dates: start: 20060523, end: 20060523

REACTIONS (1)
  - FEELING JITTERY [None]
